FAERS Safety Report 9822690 (Version 2)
Quarter: 2014Q1

REPORT INFORMATION
  Report Type: Report from Study
  Country: JP (occurrence: JP)
  Receive Date: 20140116
  Receipt Date: 20140127
  Transmission Date: 20141002
  Serious: Yes (Hospitalization)
  Sender: FDA-Public Use
  Company Number: JP-ROCHE-1331748

PATIENT
  Age: 74 Year
  Sex: Female
  Weight: 38.9 kg

DRUGS (23)
  1. BLINDED PERTUZUMAB [Suspect]
     Indication: HER-2 POSITIVE GASTRIC CANCER
     Dosage: LAST DOSE PRIOR TO THE EVENT: 11/DEC/2013
     Route: 042
     Dates: start: 20131031
  2. TRASTUZUMAB [Suspect]
     Indication: HER-2 POSITIVE GASTRIC CANCER
     Dosage: LOADING DOSE 8 MG/KG
     Route: 042
     Dates: start: 20131031
  3. TRASTUZUMAB [Suspect]
     Dosage: LAST DOSE PRIOR TO SAE: 11/DEC/2013
     Route: 042
  4. CAPECITABINE [Suspect]
     Indication: HER-2 POSITIVE GASTRIC CANCER
     Dosage: LAST DOSE PRIOR TO SAE: 25/DEC/2013
     Route: 048
     Dates: start: 20131031
  5. CISPLATIN [Suspect]
     Indication: HER-2 POSITIVE GASTRIC CANCER
     Dosage: LAST DOSE PRIOR TO SAE: 11/DEC/2013
     Route: 042
     Dates: start: 20131031
  6. CISPLATIN [Suspect]
     Dosage: REDUCED DOSE
     Route: 042
  7. HIRUDOID (JAPAN) [Concomitant]
     Indication: PALMAR-PLANTAR ERYTHRODYSAESTHESIA SYNDROME
     Route: 061
     Dates: start: 20131119
  8. EMEND [Concomitant]
     Indication: NAUSEA
     Route: 048
     Dates: start: 20131211, end: 20131211
  9. EMEND [Concomitant]
     Indication: NAUSEA
     Route: 048
     Dates: start: 20131212, end: 20131213
  10. DECADRON [Concomitant]
     Indication: NAUSEA
     Route: 048
     Dates: start: 20131212, end: 20131214
  11. ZANTAC [Concomitant]
     Indication: INFUSION RELATED REACTION
     Route: 042
     Dates: start: 20131211, end: 20131211
  12. POLARAMINE [Concomitant]
     Indication: INFUSION RELATED REACTION
     Route: 042
     Dates: start: 20131211, end: 20131211
  13. DEXART [Concomitant]
     Indication: NAUSEA
     Route: 042
     Dates: start: 20131211, end: 20131211
  14. ALOXI [Concomitant]
     Indication: NAUSEA
     Route: 042
     Dates: start: 20131211, end: 20131211
  15. MAGNESIUM OXIDE [Concomitant]
     Indication: CONSTIPATION
     Route: 048
     Dates: start: 20131216
  16. TAKEPRON OD [Concomitant]
     Indication: GASTRIC HAEMORRHAGE
     Route: 048
     Dates: start: 20131227
  17. LOXOPROFEN SODIUM [Concomitant]
     Indication: CANCER PAIN
     Route: 048
     Dates: start: 20131213
  18. REBAMIPIDE [Concomitant]
     Indication: GASTRITIS
     Route: 048
     Dates: start: 20131216
  19. ALLOID G [Concomitant]
     Indication: GASTRIC HAEMORRHAGE
     Route: 048
     Dates: start: 20131227
  20. RACOL-NF [Concomitant]
     Indication: GASTRIC HAEMORRHAGE
     Dosage: LIQUID FOR EXTERNAL USE
     Route: 048
     Dates: start: 20131227
  21. RILMAZAFONE HYDROCHLORIDE [Concomitant]
     Indication: INSOMNIA
     Route: 048
     Dates: start: 20131121
  22. TOUCHRON [Concomitant]
     Indication: PAIN IN EXTREMITY
     Route: 061
     Dates: start: 20130109
  23. FUROSEMIDE [Concomitant]
     Indication: OEDEMA
     Route: 048
     Dates: start: 20140112

REACTIONS (1)
  - Creatinine renal clearance decreased [Recovered/Resolved]
